FAERS Safety Report 11496896 (Version 2)
Quarter: 2016Q2

REPORT INFORMATION
  Report Type: Spontaneous
  Country: US (occurrence: US)
  Receive Date: 20150911
  Receipt Date: 20160517
  Transmission Date: 20160815
  Serious: Yes (Hospitalization)
  Sender: FDA-Public Use
  Company Number: US-MDT-ADR-2015-01769

PATIENT
  Age: 69 Year
  Sex: Female

DRUGS (2)
  1. LIORESAL [Suspect]
     Active Substance: BACLOFEN
     Dosage: 201.34MCG/DAY
     Route: 037
     Dates: start: 20150831
  2. LIORESAL [Suspect]
     Active Substance: BACLOFEN
     Dosage: 164.98 MCG/DAY
     Route: 037
     Dates: end: 20150831

REACTIONS (3)
  - Pruritus [Unknown]
  - Muscle spasticity [Unknown]
  - Therapeutic response decreased [Unknown]

NARRATIVE: CASE EVENT DATE: 20150709
